FAERS Safety Report 16621722 (Version 1)
Quarter: 2019Q3

REPORT INFORMATION
  Report Type: Spontaneous
  Country: US (occurrence: US)
  Receive Date: 20190723
  Receipt Date: 20190723
  Transmission Date: 20191004
  Serious: No
  Sender: FDA-Public Use
  Company Number: US-OTSUKA-2018_039115

PATIENT
  Age: 23 Year
  Sex: Male

DRUGS (1)
  1. REXULTI [Suspect]
     Active Substance: BREXPIPRAZOLE
     Indication: SCHIZOPHRENIA
     Dosage: 4 MG, QD
     Route: 048
     Dates: start: 201812, end: 20181210

REACTIONS (8)
  - Body temperature decreased [Recovered/Resolved]
  - Incorrect dose administered [Unknown]
  - Cold sweat [Recovered/Resolved]
  - Lethargy [Unknown]
  - Hyperhidrosis [Recovered/Resolved]
  - Fatigue [Unknown]
  - Vomiting [Recovered/Resolved]
  - Eye disorder [Unknown]

NARRATIVE: CASE EVENT DATE: 201812
